FAERS Safety Report 7151733-8 (Version None)
Quarter: 2010Q4

REPORT INFORMATION
  Report Type: 
  Country: None (occurrence: None)
  Receive Date: 20101210
  Receipt Date: 20101207
  Transmission Date: 20110411
  Serious: Yes (Death, Other)
  Sender: FDA-Public Use
  Company Number: PHHY2010JP71170

PATIENT
  Sex: Male
  Weight: 59 kg

DRUGS (18)
  1. AFINITOR [Suspect]
     Indication: METASTATIC RENAL CELL CARCINOMA
     Dosage: 10 MG DAILY
     Route: 048
     Dates: start: 20100810, end: 20100914
  2. AFINITOR [Suspect]
     Dosage: 05 MG,DAILY
     Route: 048
     Dates: start: 20100915, end: 20100921
  3. AFINITOR [Suspect]
     Dosage: 10 MG, DAILY
     Route: 048
     Dates: start: 20100922, end: 20101007
  4. AFINITOR [Suspect]
     Dosage: 5 MG, DAILY
     Route: 048
     Dates: start: 20101008
  5. PURSENNID [Concomitant]
     Dosage: 24 MG, UNK
     Route: 048
     Dates: start: 20091221, end: 20101012
  6. SUNITINIB MALATE [Concomitant]
     Indication: METASTATIC RENAL CELL CARCINOMA
     Dosage: 37.5 MG, UNK
     Route: 048
     Dates: start: 20100413, end: 20100720
  7. SORAFENIB TOSILATE [Concomitant]
     Indication: METASTATIC RENAL CELL CARCINOMA
     Dosage: 400 MG, UNK
     Dates: start: 20090302, end: 20100331
  8. CALCIUM POLYSTYRENE SULFONATE [Concomitant]
     Dosage: 50 G, UNK
     Route: 048
     Dates: start: 20091109, end: 20101012
  9. EXCEGRAN [Concomitant]
     Indication: METASTATIC RENAL CELL CARCINOMA
     Dosage: 200 MG, UNK
     Route: 048
     Dates: start: 20090629, end: 20101012
  10. MAGLAX [Concomitant]
     Dosage: 990 MG, UNK
     Route: 048
     Dates: start: 20090709, end: 20101012
  11. KREMEZIN [Concomitant]
     Dosage: 2400 MG, UNK
     Route: 048
     Dates: start: 20100315, end: 20101012
  12. ADALAT CC [Concomitant]
     Dosage: 80 MG, UNK
     Route: 048
     Dates: start: 20100412, end: 20101012
  13. MYSLEE [Concomitant]
     Dosage: 10 MG, UNK
     Route: 048
     Dates: start: 20100630, end: 20101012
  14. ALTAT [Concomitant]
     Dosage: 75 MG, UNK
     Route: 048
     Dates: start: 20100709, end: 20101012
  15. BLOPRESS [Concomitant]
     Dosage: 8 MG, UNK
     Route: 048
     Dates: start: 20100412, end: 20101012
  16. PYDOXAL [Concomitant]
     Indication: METASTATIC RENAL CELL CARCINOMA
     Dosage: 8 MG, UNK
     Route: 048
     Dates: start: 20100412, end: 20101012
  17. MUCOSOLVAN [Concomitant]
     Indication: METASTATIC RENAL CELL CARCINOMA
     Dosage: 45 MG, UNK
     Route: 048
     Dates: start: 20090914, end: 20101012
  18. CODEINE PHOSPHATE [Concomitant]
     Indication: METASTATIC RENAL CELL CARCINOMA
     Dosage: 60 MG, UNK
     Route: 048
     Dates: start: 20100915, end: 20101012

REACTIONS (8)
  - ACUTE RESPIRATORY DISTRESS SYNDROME [None]
  - ANAEMIA [None]
  - BLOOD CREATININE INCREASED [None]
  - BLOOD LACTIC ACID INCREASED [None]
  - C-REACTIVE PROTEIN INCREASED [None]
  - CARDIAC ARREST [None]
  - HYPERGLYCAEMIA [None]
  - PULMONARY OEDEMA [None]
